FAERS Safety Report 4317018-X (Version None)
Quarter: 2004Q1

REPORT INFORMATION
  Report Type: 
  Country: None (occurrence: None)
  Receive Date: 20040312
  Receipt Date: 20040227
  Transmission Date: 20041129
  Serious: Yes (Other)
  Sender: FDA-Public Use
  Company Number: HQWYE525003MAR04

PATIENT
  Age: 85 Year
  Sex: Male
  Weight: 86.26 kg

DRUGS (3)
  1. ADVIL [Suspect]
     Indication: ARTHRITIS
     Dosage: 2 CAPSULES EVERY 6 HOURS, ORAL
     Route: 048
     Dates: start: 20040101, end: 20040225
  2. ADVIL [Suspect]
     Indication: BACK PAIN
     Dosage: 2 CAPSULES EVERY 6 HOURS, ORAL
     Route: 048
     Dates: start: 20040101, end: 20040225
  3. PREDNISONE [Concomitant]

REACTIONS (1)
  - HYPERTENSION [None]
